FAERS Safety Report 5031580-3 (Version None)
Quarter: 2006Q2

REPORT INFORMATION
  Report Type: 
  Country: None (occurrence: None)
  Receive Date: 20060505
  Receipt Date: 20051025
  Transmission Date: 20061013
  Serious: Yes (Other)
  Sender: FDA-Public Use
  Company Number: PHEH2005US04970

PATIENT
  Age: 54 Year
  Sex: Female
  Weight: 101.6 kg

DRUGS (2)
  1. DIOVAN HCT [Suspect]
     Indication: HYPERTENSION
     Dosage: QD
     Dates: start: 20010101, end: 20040101
  2. HYDROCHLOROTHIAZIDE [Concomitant]

REACTIONS (2)
  - BLOOD POTASSIUM DECREASED [None]
  - PALPITATIONS [None]
